FAERS Safety Report 8986713 (Version 1)
Quarter: 2012Q4

REPORT INFORMATION
  Report Type: Spontaneous
  Country: US (occurrence: None)
  Receive Date: 20121219
  Receipt Date: 20121219
  Transmission Date: 20130627
  Serious: Yes (Other)
  Sender: FDA-Public Use
  Company Number: None

PATIENT
  Age: 62 Year
  Sex: Female
  Weight: 66.23 kg

DRUGS (2)
  1. CYMBALTA [Suspect]
     Indication: DEPRESSION
     Route: 048
     Dates: start: 20121102, end: 20121202
  2. CYMBALTA [Suspect]
     Indication: DRUG THERAPY CHANGED
     Route: 048
     Dates: start: 20121102, end: 20121202

REACTIONS (9)
  - Erythema [None]
  - Blister [None]
  - Skin exfoliation [None]
  - Pruritus [None]
  - Skin lesion [None]
  - Skin fissures [None]
  - Secretion discharge [None]
  - Oedema peripheral [None]
  - Pain [None]
